FAERS Safety Report 5219215-8 (Version None)
Quarter: 2007Q1

REPORT INFORMATION
  Report Type: 
  Country: None (occurrence: None)
  Receive Date: 20070125
  Receipt Date: 20070115
  Transmission Date: 20070707
  Serious: Yes (Death, Hospitalization, Other)
  Sender: FDA-Public Use
  Company Number: GB-JNJFOC-20060903029

PATIENT
  Sex: Female
  Weight: 62.8 kg

DRUGS (12)
  1. REMICADE [Suspect]
     Indication: RHEUMATOID ARTHRITIS
     Route: 042
  2. PREDNISONE [Concomitant]
     Route: 065
  3. MTX [Concomitant]
     Route: 065
  4. PREDNISOLONE [Concomitant]
     Route: 065
  5. CODYDRAMOL [Concomitant]
     Route: 065
  6. FRUSEMIDE [Concomitant]
     Route: 065
  7. WARFARIN SODIUM [Concomitant]
     Route: 065
  8. AMIODARONE HCL [Concomitant]
     Route: 065
  9. FOSAMAX [Concomitant]
     Route: 065
  10. FOLIC ACID [Concomitant]
     Route: 065
  11. SALBUTAMOL [Concomitant]
     Route: 055
  12. BECLOMETHASONE DIPROPIONATE [Concomitant]
     Route: 065

REACTIONS (11)
  - CARDIAC FAILURE [None]
  - CARDIOGENIC SHOCK [None]
  - CEREBROVASCULAR ACCIDENT [None]
  - LACTIC ACIDOSIS [None]
  - PNEUMONIA [None]
  - PNEUMONITIS [None]
  - POIKILOCYTOSIS [None]
  - RENAL FAILURE [None]
  - SEPSIS [None]
  - VENTRICULAR TACHYCARDIA [None]
  - WHITE BLOOD CELL DISORDER [None]
